FAERS Safety Report 21072789 (Version 1)
Quarter: 2022Q3

REPORT INFORMATION
  Report Type: Spontaneous
  Country: US (occurrence: US)
  Receive Date: 20220712
  Receipt Date: 20220712
  Transmission Date: 20221027
  Serious: No
  Sender: FDA-Public Use
  Company Number: US-TEVA-2022-US-2047213

PATIENT
  Age: 67 Year
  Sex: Female

DRUGS (1)
  1. MIMVEY [Suspect]
     Active Substance: ESTRADIOL\NORETHINDRONE ACETATE
     Indication: Hormone replacement therapy
     Dosage: 1-0.5 MG-MG
     Route: 065
     Dates: start: 20220324

REACTIONS (9)
  - Illness [Recovered/Resolved]
  - Sinusitis [Unknown]
  - Bronchitis [Unknown]
  - Headache [Unknown]
  - Upper respiratory tract infection [Unknown]
  - Viral infection [Unknown]
  - Oropharyngeal discomfort [Recovered/Resolved]
  - Dysphonia [Recovered/Resolved]
  - Mobility decreased [Recovered/Resolved]

NARRATIVE: CASE EVENT DATE: 20220101
